FAERS Safety Report 8203885-6 (Version None)
Quarter: 2012Q1

REPORT INFORMATION
  Report Type: 
  Country: None (occurrence: None)
  Receive Date: 20120313
  Receipt Date: 20120302
  Transmission Date: 20120608
  Serious: Yes (Hospitalization)
  Sender: FDA-Public Use
  Company Number: US-BAYER-2011-061348

PATIENT
  Age: 35 Year
  Sex: Female
  Weight: 124.72 kg

DRUGS (7)
  1. ORTHO TRI-CYCLEN [Concomitant]
     Indication: CONTRACEPTION
     Route: 048
  2. YASMIN [Suspect]
     Indication: CONTRACEPTION
     Dosage: UNK
     Route: 048
     Dates: start: 20060926, end: 20061213
  3. YAZ [Suspect]
     Indication: CONTRACEPTION
     Dosage: UNK
     Route: 048
     Dates: start: 20090602, end: 20100519
  4. HYDROCHLOROTHIAZIDE [Concomitant]
     Indication: SWELLING
     Dosage: 12.5 MG, UNK
     Route: 048
  5. VITAMIN E [Concomitant]
     Route: 048
  6. CALCIUM CARBONATE [Concomitant]
     Route: 048
  7. ASCORBIC ACID [Concomitant]
     Route: 048

REACTIONS (4)
  - INJURY [None]
  - ABDOMINAL PAIN UPPER [None]
  - CHOLELITHIASIS [None]
  - CHOLECYSTITIS CHRONIC [None]
